FAERS Safety Report 14470439 (Version 1)
Quarter: 2018Q1

REPORT INFORMATION
  Report Type: Spontaneous
  Country: US (occurrence: US)
  Receive Date: 20180131
  Receipt Date: 20180131
  Transmission Date: 20180509
  Serious: No
  Sender: FDA-Public Use
  Company Number: US-TARO-2017TAR00962

PATIENT
  Age: 50 Year
  Sex: Female
  Weight: 62.36 kg

DRUGS (1)
  1. NAFTIFINE HYDROCHLORIDE CREAM USP 2% [Suspect]
     Active Substance: NAFTIFINE HYDROCHLORIDE
     Indication: FUNGAL INFECTION
     Dosage: ^SMALL AMOUNT ON THE FEET^ ONCE
     Route: 061
     Dates: start: 201710, end: 201710

REACTIONS (5)
  - Hypersensitivity [Recovered/Resolved]
  - Incorrect drug administration duration [Recovered/Resolved]
  - Application site pain [Recovered/Resolved]
  - Drug ineffective [Recovered/Resolved]
  - Application site rash [Recovered/Resolved]

NARRATIVE: CASE EVENT DATE: 201710
